FAERS Safety Report 25212206 (Version 1)
Quarter: 2025Q2

REPORT INFORMATION
  Report Type: Spontaneous
  Country: US (occurrence: US)
  Receive Date: 20250418
  Receipt Date: 20250418
  Transmission Date: 20250716
  Serious: Yes (Other)
  Sender: AMGEN
  Company Number: US-AMGEN-USASP2025074810

PATIENT
  Age: 30 Year
  Sex: Male

DRUGS (5)
  1. ADALIMUMAB [Suspect]
     Active Substance: ADALIMUMAB
     Indication: Psoriatic arthropathy
     Route: 065
  2. APREMILAST [Suspect]
     Active Substance: APREMILAST
     Indication: Psoriatic arthropathy
     Route: 065
  3. LEFLUNOMIDE [Concomitant]
     Active Substance: LEFLUNOMIDE
     Route: 065
  4. IXEKIZUMAB [Concomitant]
     Active Substance: IXEKIZUMAB
     Route: 065
  5. OFATUMUMAB [Concomitant]
     Active Substance: OFATUMUMAB
     Route: 065

REACTIONS (3)
  - Demyelination [Unknown]
  - Psoriatic arthropathy [Unknown]
  - Multiple sclerosis [Unknown]
